FAERS Safety Report 4391955-2 (Version None)
Quarter: 2004Q3

REPORT INFORMATION
  Report Type: 
  Country: None (occurrence: None)
  Receive Date: 20040701
  Receipt Date: 20040614
  Transmission Date: 20050211
  Serious: Yes (Hospitalization, Other)
  Sender: FDA-Public Use
  Company Number: USA040464011

PATIENT
  Age: 68 Year
  Sex: Female

DRUGS (1)
  1. FORTEO [Suspect]
     Indication: OSTEOPOROSIS
     Dates: start: 20040326

REACTIONS (10)
  - CONTUSION [None]
  - FALL [None]
  - JOINT DISLOCATION [None]
  - NAUSEA [None]
  - PAIN [None]
  - PHARMACEUTICAL PRODUCT COMPLAINT [None]
  - RADIUS FRACTURE [None]
  - ROTATOR CUFF SYNDROME [None]
  - ULNA FRACTURE [None]
  - WRIST FRACTURE [None]
